FAERS Safety Report 6141262-2 (Version None)
Quarter: 2009Q1

REPORT INFORMATION
  Report Type: 
  Country: None (occurrence: None)
  Receive Date: 20090330
  Receipt Date: 20090330
  Transmission Date: 20090719
  Serious: No
  Sender: FDA-Public Use
  Company Number: None

PATIENT
  Age: 62 Year
  Sex: Female
  Weight: 74.8435 kg

DRUGS (2)
  1. VERAMYST [Suspect]
     Dosage: 1 SPRAY IN NOST
  2. ALOCRIL [Suspect]
     Dosage: 1 DROP EACH EYE

REACTIONS (1)
  - REACTION TO PRESERVATIVES [None]
